FAERS Safety Report 6010260-1 (Version None)
Quarter: 2008Q4

REPORT INFORMATION
  Report Type: 
  Country: None (occurrence: None)
  Receive Date: 20081218
  Receipt Date: 20080312
  Transmission Date: 20090506
  Serious: No
  Sender: FDA-Public Use
  Company Number: A0714983A

PATIENT
  Age: 69 Year
  Sex: Male

DRUGS (4)
  1. FLONASE [Suspect]
     Indication: SINUS CONGESTION
     Dosage: 1SPR PER DAY
     Route: 045
     Dates: end: 20080101
  2. FLUTICASONE PROPIONATE [Suspect]
     Indication: SINUS CONGESTION
     Dosage: 1SPR PER DAY
     Route: 045
  3. DIPHENAMILL [Concomitant]
  4. LOVASTATIN [Concomitant]

REACTIONS (4)
  - AGEUSIA [None]
  - ANOSMIA [None]
  - THERAPEUTIC RESPONSE UNEXPECTED [None]
  - WEIGHT DECREASED [None]
